FAERS Safety Report 9669915 (Version 3)
Quarter: 2013Q4

REPORT INFORMATION
  Report Type: Spontaneous
  Country: US (occurrence: US)
  Receive Date: 20131105
  Receipt Date: 20131220
  Transmission Date: 20140711
  Serious: Yes (Hospitalization, Other)
  Sender: FDA-Public Use
  Company Number: US-INCYTE CORPORATION-2013IN002586

PATIENT
  Age: 86 Year
  Sex: Male

DRUGS (12)
  1. JAKAFI [Suspect]
     Indication: MYELOFIBROSIS
     Dosage: 15 MG, BID
     Route: 048
     Dates: start: 20130801, end: 20130820
  2. JAKAFI [Suspect]
     Dosage: 5 MG, QAM
     Route: 048
     Dates: start: 20130821, end: 20130903
  3. JAKAFI [Suspect]
     Dosage: 5 MG, BID
     Route: 048
     Dates: start: 20130904, end: 20131020
  4. GLIPIZIDE [Concomitant]
  5. ACTOS [Concomitant]
  6. ARANESP [Concomitant]
  7. ALLEGRA [Concomitant]
  8. ASPIRIN [Concomitant]
     Dosage: 81 MG
  9. ATENOLOL [Concomitant]
  10. SIMVASTATIN [Concomitant]
  11. AMIODARONE [Concomitant]
  12. FUROSEMIDE [Concomitant]
     Dosage: UNK

REACTIONS (5)
  - Haemoptysis [Recovered/Resolved]
  - Pneumonia [Recovered/Resolved]
  - Haemoglobin decreased [Unknown]
  - White blood cell count increased [Unknown]
  - Platelet count decreased [Unknown]
